FAERS Safety Report 8053125-6 (Version None)
Quarter: 2012Q1

REPORT INFORMATION
  Report Type: 
  Country: None (occurrence: None)
  Receive Date: 20120118
  Receipt Date: 20120116
  Transmission Date: 20120608
  Serious: Yes (Other)
  Sender: FDA-Public Use
  Company Number: JP-PFIZER INC-2011287409

PATIENT
  Age: 81 Year
  Sex: Female

DRUGS (6)
  1. AMPICILLIN SODIUM/SULBACTAM SODIUM [Suspect]
     Dosage: 3 G, 4X/DAY
  2. CLINDAMYCIN PHOSPHATE [Suspect]
     Indication: ENDOCARDITIS
     Dosage: 600 MG, 3X/DAY
     Dates: start: 20110501, end: 20110101
  3. ACETAMINOPHEN [Suspect]
  4. GENTAMICIN [Concomitant]
     Indication: ENDOCARDITIS
     Dosage: UNK
     Dates: start: 20110501, end: 20110501
  5. AMPICILLIN SODIUM/SULBACTAM SODIUM [Suspect]
     Indication: ENDOCARDITIS
     Dosage: 2.5 G, 4X/DAY
     Dates: start: 20110501
  6. CEFAZOLIN [Suspect]
     Indication: ENDOCARDITIS
     Dosage: 2 G, 3X/DAY
     Dates: start: 20110501

REACTIONS (1)
  - GRANULOCYTOPENIA [None]
